FAERS Safety Report 7500935-7 (Version None)
Quarter: 2011Q2

REPORT INFORMATION
  Report Type: 
  Country: None (occurrence: None)
  Receive Date: 20110524
  Receipt Date: 20110505
  Transmission Date: 20111010
  Serious: Yes (Hospitalization)
  Sender: FDA-Public Use
  Company Number: DE-BAYER-2011-003482

PATIENT
  Age: 54 Year
  Sex: Female
  Weight: 73 kg

DRUGS (6)
  1. CYCLOPHOSPHAMIDE [Suspect]
     Dosage: 1014 MG, UNK
     Route: 042
     Dates: start: 20110201, end: 20110202
  2. SORAFENIB (RAF KINASE INHIBITOR) [Suspect]
     Indication: BREAST CANCER
     Dosage: 200 MG, QD
     Route: 048
     Dates: start: 20101102, end: 20110212
  3. PACLITAXEL [Suspect]
     Indication: BREAST CANCER
     Dosage: 135 MG ON DAY 1,8,15 Q 21 DAYS
     Route: 042
     Dates: start: 20101102, end: 20110104
  4. EPIRUBICIN [Suspect]
     Dosage: 152 MG, UNK
     Route: 042
     Dates: start: 20110201
  5. NADIFLOXACIN [Concomitant]
     Indication: SKIN REACTION
     Dosage: UNK
     Dates: start: 20101208
  6. PANTOPRAZOLE [Concomitant]
     Indication: PROPHYLAXIS
     Dosage: UNK
     Dates: start: 20101208

REACTIONS (6)
  - FEBRILE NEUTROPENIA [None]
  - PYREXIA [None]
  - ANAEMIA [None]
  - DYSPNOEA [None]
  - SUBCUTANEOUS ABSCESS [None]
  - PNEUMONIA [None]
